FAERS Safety Report 9571874 (Version 1)
Quarter: 2013Q4

REPORT INFORMATION
  Report Type: Spontaneous
  Country: US (occurrence: US)
  Receive Date: 20131001
  Receipt Date: 20131001
  Transmission Date: 20140711
  Serious: No
  Sender: FDA-Public Use
  Company Number: US-ABBVIE-12P-163-1019265-00

PATIENT
  Sex: Male

DRUGS (2)
  1. KALETRA [Suspect]
     Indication: PROPHYLAXIS AGAINST HIV INFECTION
     Dates: start: 2012
  2. TRUVADA [Concomitant]
     Indication: PROPHYLAXIS AGAINST HIV INFECTION

REACTIONS (1)
  - Off label use [Unknown]
